FAERS Safety Report 9967507 (Version 1)
Quarter: 2014Q1

REPORT INFORMATION
  Report Type: Report from Study
  Country: US (occurrence: US)
  Receive Date: 20140305
  Receipt Date: 20140305
  Transmission Date: 20141002
  Serious: No
  Sender: FDA-Public Use
  Company Number: US-ABBVIE-13P-163-1139121-00

PATIENT
  Age: 52 Year
  Sex: Female

DRUGS (3)
  1. HUMIRA [Suspect]
     Indication: ANKYLOSING SPONDYLITIS
     Dates: start: 20130716
  2. APRISO [Concomitant]
     Indication: ANKYLOSING SPONDYLITIS
     Dosage: 2 TABLETS IN MORNING AND 2 TABLETS IN EVENING
  3. APRISO [Concomitant]
     Indication: COLITIS ULCERATIVE

REACTIONS (2)
  - Arthropathy [Not Recovered/Not Resolved]
  - Injection site pain [Not Recovered/Not Resolved]
